FAERS Safety Report 18367000 (Version 3)
Quarter: 2023Q1

REPORT INFORMATION
  Report Type: Spontaneous
  Country: US (occurrence: None)
  Receive Date: 20201009
  Receipt Date: 20230309
  Transmission Date: 20230417
  Serious: Yes (Hospitalization, Other)
  Sender: FDA-Public Use
  Company Number: 2020SF28005

PATIENT
  Age: 19071 Day
  Sex: Male
  Weight: 127.5 kg

DRUGS (46)
  1. FARXIGA [Suspect]
     Active Substance: DAPAGLIFLOZIN PROPANEDIOL
     Indication: Type 2 diabetes mellitus
     Route: 048
     Dates: start: 20160406, end: 201808
  2. FARXIGA [Suspect]
     Active Substance: DAPAGLIFLOZIN PROPANEDIOL
     Indication: Weight decreased
     Route: 048
     Dates: start: 20160406, end: 201808
  3. FARXIGA [Suspect]
     Active Substance: DAPAGLIFLOZIN PROPANEDIOL
     Indication: Blood pressure decreased
     Route: 048
     Dates: start: 20160406, end: 201808
  4. FARXIGA [Suspect]
     Active Substance: DAPAGLIFLOZIN PROPANEDIOL
     Indication: Type 2 diabetes mellitus
     Route: 048
     Dates: start: 20160720
  5. FARXIGA [Suspect]
     Active Substance: DAPAGLIFLOZIN PROPANEDIOL
     Indication: Weight decreased
     Route: 048
     Dates: start: 20160720
  6. FARXIGA [Suspect]
     Active Substance: DAPAGLIFLOZIN PROPANEDIOL
     Indication: Blood pressure decreased
     Route: 048
     Dates: start: 20160720
  7. METFORMIN [Concomitant]
     Active Substance: METFORMIN HYDROCHLORIDE
  8. AMOXICILLIN\CLAVULANATE POTASSIUM [Concomitant]
     Active Substance: AMOXICILLIN\CLAVULANATE POTASSIUM
  9. NOVOLOG [Concomitant]
     Active Substance: INSULIN ASPART
  10. LISINOPRIL [Concomitant]
     Active Substance: LISINOPRIL
  11. INVOKANA [Concomitant]
     Active Substance: CANAGLIFLOZIN
  12. ATROPINE SULFATE\DIPHENOXYLATE HYDROCHLORIDE [Concomitant]
     Active Substance: ATROPINE SULFATE\DIPHENOXYLATE HYDROCHLORIDE
  13. AMOXICILLIN [Concomitant]
     Active Substance: AMOXICILLIN
  14. CRESTOR [Concomitant]
     Active Substance: ROSUVASTATIN CALCIUM
  15. BYDUREON [Concomitant]
     Active Substance: EXENATIDE
  16. TOUJEO [Concomitant]
     Active Substance: INSULIN GLARGINE
  17. DOXYCYCLINE HYCLATE [Concomitant]
     Active Substance: DOXYCYCLINE HYCLATE
  18. PREDNISONE [Concomitant]
     Active Substance: PREDNISONE
  19. VALACYCLOVIR HYDROCHLORIDE [Concomitant]
     Active Substance: VALACYCLOVIR HYDROCHLORIDE
  20. ESCITALOPRAM [Concomitant]
     Active Substance: ESCITALOPRAM OXALATE
  21. TRESIBA [Concomitant]
     Active Substance: INSULIN DEGLUDEC
  22. TERBINAFINE HYDROCHLORIDE [Concomitant]
     Active Substance: TERBINAFINE HYDROCHLORIDE
  23. TRULICITY [Concomitant]
     Active Substance: DULAGLUTIDE
  24. CEPHALEXIN [Concomitant]
     Active Substance: CEPHALEXIN
  25. SULFAMETHOXAZOLE [Concomitant]
     Active Substance: SULFAMETHOXAZOLE
  26. METRONIDAZOLE [Concomitant]
     Active Substance: METRONIDAZOLE
  27. ACETAMINOPHEN\HYDROCODONE [Concomitant]
     Active Substance: ACETAMINOPHEN\HYDROCODONE
  28. LYRICA [Concomitant]
     Active Substance: PREGABALIN
  29. ASPIRIN [Concomitant]
     Active Substance: ASPIRIN
  30. LACTIC ACID [Concomitant]
     Active Substance: LACTIC ACID
  31. BACTRIM [Concomitant]
     Active Substance: SULFAMETHOXAZOLE\TRIMETHOPRIM
  32. ZOSYN [Concomitant]
     Active Substance: PIPERACILLIN SODIUM\TAZOBACTAM SODIUM
  33. VIAGRA [Concomitant]
     Active Substance: SILDENAFIL CITRATE
  34. VANCOMYCIN [Concomitant]
     Active Substance: VANCOMYCIN
  35. CALCIUM [Concomitant]
     Active Substance: CALCIUM
  36. FLAGYL [Concomitant]
     Active Substance: METRONIDAZOLE\METRONIDAZOLE HYDROCHLORIDE
  37. INSULIN GLARGINE [Concomitant]
     Active Substance: INSULIN GLARGINE
  38. ATORVASTATIN [Concomitant]
     Active Substance: ATORVASTATIN
  39. INFLUENZA VIRUS VACCINE [Concomitant]
     Active Substance: INFLUENZA VIRUS VACCINE
  40. KETOROLAC [Concomitant]
     Active Substance: KETOROLAC TROMETHAMINE
  41. VANCOMYCIN [Concomitant]
     Active Substance: VANCOMYCIN
  42. FAMOTIDINE [Concomitant]
     Active Substance: FAMOTIDINE
  43. LINAGLIPTIN [Concomitant]
     Active Substance: LINAGLIPTIN
  44. DICLOFENAC SODIUM [Concomitant]
     Active Substance: DICLOFENAC SODIUM
  45. TRESIBA [Concomitant]
     Active Substance: INSULIN DEGLUDEC
  46. VICTOZA [Concomitant]
     Active Substance: LIRAGLUTIDE

REACTIONS (8)
  - Testicular swelling [Unknown]
  - Groin abscess [Unknown]
  - Necrotising soft tissue infection [Unknown]
  - Groin infection [Unknown]
  - Scrotal cellulitis [Unknown]
  - Fournier^s gangrene [Unknown]
  - Genital abscess [Unknown]
  - Anal abscess [Unknown]

NARRATIVE: CASE EVENT DATE: 20180731
